FAERS Safety Report 24946503 (Version 1)
Quarter: 2025Q1

REPORT INFORMATION
  Report Type: Spontaneous
  Country: DZ (occurrence: DZ)
  Receive Date: 20250210
  Receipt Date: 20250210
  Transmission Date: 20250409
  Serious: Yes (Other)
  Sender: PFIZER
  Company Number: DZ-PFIZER INC-202500022126

PATIENT
  Sex: Female

DRUGS (1)
  1. PACLITAXEL [Suspect]
     Active Substance: PACLITAXEL
     Indication: Ovarian cancer stage III

REACTIONS (4)
  - Hypersensitivity [Unknown]
  - Cyanosis [Unknown]
  - Cardiac discomfort [Unknown]
  - Off label use [Unknown]
